FAERS Safety Report 23389785 (Version 1)
Quarter: 2024Q1

REPORT INFORMATION
  Report Type: Spontaneous
  Country: US (occurrence: US)
  Receive Date: 20240111
  Receipt Date: 20240111
  Transmission Date: 20240409
  Serious: Yes (Life-Threatening, Hospitalization, Other)
  Sender: FDA-Public Use
  Company Number: US-862174955-ML2024-00094

PATIENT
  Age: 29 Year
  Sex: Female

DRUGS (3)
  1. BUPROPION [Suspect]
     Active Substance: BUPROPION
     Indication: Product used for unknown indication
     Dosage: LARGE QUANTITIES OF BUPROPION, ALPRAZOLAM AND LISDEXAMFETAMINE
  2. ALPRAZOLAM [Suspect]
     Active Substance: ALPRAZOLAM
     Indication: Product used for unknown indication
     Dosage: LARGE QUANTITIES OF BUPROPION, ALPRAZOLAM AND LISDEXAMFETAMINE
  3. LISDEXAMFETAMINE [Suspect]
     Active Substance: LISDEXAMFETAMINE
     Indication: Product used for unknown indication
     Dosage: LARGE QUANTITIES OF BUPROPION, ALPRAZOLAM AND LISDEXAMFETAMINE

REACTIONS (5)
  - Toxicity to various agents [Unknown]
  - Cardiogenic shock [Recovered/Resolved]
  - Status epilepticus [Recovered/Resolved]
  - Overdose [Unknown]
  - Unresponsive to stimuli [Recovered/Resolved]
